FAERS Safety Report 7913182-1 (Version None)
Quarter: 2011Q4

REPORT INFORMATION
  Report Type: 
  Country: None (occurrence: None)
  Receive Date: 20111114
  Receipt Date: 20111109
  Transmission Date: 20120403
  Serious: Yes (Death)
  Sender: FDA-Public Use
  Company Number: IT-ROCHE-1010116

PATIENT
  Sex: Male
  Weight: 80.3 kg

DRUGS (10)
  1. SINTROM [Concomitant]
     Dates: start: 20060601
  2. LANSOPRAZOLE [Concomitant]
     Dates: start: 20110215
  3. CINACALCET [Concomitant]
     Dates: start: 20110920
  4. NAHCO3 [Concomitant]
     Dates: start: 20000501
  5. BISOPROLOL [Concomitant]
     Dates: start: 20090421
  6. LEVOTIROXINA [Concomitant]
     Dates: start: 20091105
  7. MIRCERA [Suspect]
     Indication: NEPHROGENIC ANAEMIA
     Route: 042
     Dates: start: 20110310
  8. PARICALCITOL [Concomitant]
     Dates: start: 20101223
  9. ALUMINUM HYDROXIDE [Concomitant]
     Dates: start: 20100911
  10. SEVELAMER [Concomitant]
     Dates: start: 20100610

REACTIONS (1)
  - SUDDEN DEATH [None]
